FAERS Safety Report 6270476-6 (Version None)
Quarter: 2009Q3

REPORT INFORMATION
  Report Type: 
  Country: None (occurrence: None)
  Receive Date: 20090716
  Receipt Date: 20090714
  Transmission Date: 20100115
  Serious: Yes (Other)
  Sender: FDA-Public Use
  Company Number: US-JNJFOC-20090704463

PATIENT
  Age: 52 Year
  Sex: Male

DRUGS (5)
  1. INTELENCE [Suspect]
     Indication: HIV INFECTION
     Route: 048
  2. PREZISTA [Suspect]
     Indication: HIV INFECTION
     Route: 048
  3. NORVIR [Concomitant]
     Indication: HIV INFECTION
  4. ISENTRESS [Concomitant]
     Indication: HIV INFECTION
  5. TRUVADA [Concomitant]
     Indication: HIV INFECTION

REACTIONS (1)
  - THYROIDITIS [None]
